FAERS Safety Report 13966484 (Version 1)
Quarter: 2017Q3

REPORT INFORMATION
  Report Type: Spontaneous
  Country: US (occurrence: US)
  Receive Date: 20170913
  Receipt Date: 20170913
  Transmission Date: 20171128
  Serious: Yes (Other)
  Sender: FDA-Public Use
  Company Number: PHEH2017US028708

PATIENT
  Sex: Female

DRUGS (1)
  1. AFINITOR [Suspect]
     Active Substance: EVEROLIMUS
     Indication: BREAST CANCER
     Route: 048

REACTIONS (11)
  - Breast mass [Unknown]
  - Arthralgia [Unknown]
  - Chest wall tumour [Unknown]
  - Weight increased [Unknown]
  - Cataract [Unknown]
  - Obesity [Unknown]
  - Pulmonary mass [Unknown]
  - Carbohydrate antigen 15-3 increased [Unknown]
  - Restless legs syndrome [Unknown]
  - Second primary malignancy [Unknown]
  - Back pain [Unknown]
